FAERS Safety Report 13928587 (Version 2)
Quarter: 2017Q4

REPORT INFORMATION
  Report Type: Report from Study
  Country: CA (occurrence: CA)
  Receive Date: 20170901
  Receipt Date: 20171023
  Transmission Date: 20180320
  Serious: Yes (Other)
  Sender: FDA-Public Use
  Company Number: CA-AMGEN-CANSL2017130521

PATIENT
  Age: 60 Year
  Sex: Female

DRUGS (12)
  1. PROLIA [Suspect]
     Active Substance: DENOSUMAB
     Indication: OSTEOPENIA
  2. VENTOLIN [Concomitant]
     Active Substance: ALBUTEROL SULFATE
  3. ACTONEL [Concomitant]
     Active Substance: RISEDRONATE SODIUM
     Dosage: UNK
  4. ESTRACE [Concomitant]
     Active Substance: ESTRADIOL
  5. ADVAIR HFA [Concomitant]
     Active Substance: FLUTICASONE PROPIONATE\SALMETEROL XINAFOATE
  6. MAGNESIUM [Concomitant]
     Active Substance: MAGNESIUM
  7. VITAMIN D [Concomitant]
     Active Substance: CHOLECALCIFEROL
  8. CALCIUM [Concomitant]
     Active Substance: CALCIUM
  9. PROBIOTICS [Concomitant]
     Active Substance: PROBIOTICS NOS
  10. METROGEL [Concomitant]
     Active Substance: METRONIDAZOLE
     Indication: ROSACEA
  11. PROLIA [Suspect]
     Active Substance: DENOSUMAB
     Indication: OSTEOPOROSIS POSTMENOPAUSAL
     Dosage: UNK
     Route: 065
     Dates: start: 20160927
  12. METAMUCIL [Concomitant]
     Active Substance: PLANTAGO SEED

REACTIONS (9)
  - Pulmonary mass [Not Recovered/Not Resolved]
  - Pneumonia [Not Recovered/Not Resolved]
  - Viral infection [Not Recovered/Not Resolved]
  - Mycobacterium avium complex infection [Unknown]
  - Tendonitis [Unknown]
  - Off label use [Unknown]
  - Lung infection [Not Recovered/Not Resolved]
  - Autoimmune thyroiditis [Unknown]
  - Cardiovascular disorder [Unknown]

NARRATIVE: CASE EVENT DATE: 2016
